FAERS Safety Report 11228756 (Version 1)
Quarter: 2015Q2

REPORT INFORMATION
  Report Type: Spontaneous
  Country: US (occurrence: US)
  Receive Date: 20150630
  Receipt Date: 20150630
  Transmission Date: 20150821
  Serious: No
  Sender: FDA-Public Use
  Company Number: US-009507513-1506USA013856

PATIENT
  Age: 23 Year
  Sex: Female
  Weight: 104.31 kg

DRUGS (2)
  1. IMPLANON [Suspect]
     Active Substance: ETONOGESTREL
     Indication: CONTRACEPTION
     Dosage: FREQUENCY: 3 YEARS. PLACED IN THE RIGHT ARM
     Route: 059
     Dates: start: 2011
  2. PHENOBARBITAL. [Concomitant]
     Active Substance: PHENOBARBITAL

REACTIONS (7)
  - Vomiting [Unknown]
  - Menorrhagia [Unknown]
  - Application site pain [Unknown]
  - Incorrect drug administration duration [Unknown]
  - Pyrexia [Unknown]
  - Headache [Unknown]
  - Nausea [Unknown]

NARRATIVE: CASE EVENT DATE: 2015
